FAERS Safety Report 12481355 (Version 1)
Quarter: 2016Q2

REPORT INFORMATION
  Report Type: Spontaneous
  Country: JP (occurrence: JP)
  Receive Date: 20160620
  Receipt Date: 20160620
  Transmission Date: 20160815
  Serious: Yes (Other)
  Sender: FDA-Public Use
  Company Number: JP-PFIZER INC-2016229475

PATIENT
  Age: 18 Year
  Sex: Female

DRUGS (4)
  1. METHOTREXATE SODIUM. [Suspect]
     Active Substance: METHOTREXATE SODIUM
     Dosage: 10 MG, WEEKLY
  2. AZATHIOPRINE. [Suspect]
     Active Substance: AZATHIOPRINE
     Indication: SARCOIDOSIS
     Dosage: 100 MG, DAILY
  3. PREDNISOLONE. [Suspect]
     Active Substance: PREDNISOLONE
     Indication: SARCOIDOSIS
     Dosage: 30 MG, DAILY
     Route: 048
  4. METHOTREXATE SODIUM. [Suspect]
     Active Substance: METHOTREXATE SODIUM
     Indication: NEUROSARCOIDOSIS
     Dosage: 5 MG, WEEKLY
     Dates: start: 201305

REACTIONS (3)
  - Hydrocephalus [Recovered/Resolved]
  - Drug ineffective [Recovering/Resolving]
  - Condition aggravated [Recovered/Resolved]
